FAERS Safety Report 11560962 (Version 1)
Quarter: 2015Q3

REPORT INFORMATION
  Report Type: Spontaneous
  Country: US (occurrence: US)
  Receive Date: 20150928
  Receipt Date: 20150928
  Transmission Date: 20151125
  Serious: Yes (Other)
  Sender: FDA-Public Use
  Company Number: US-PFIZER INC-2015319042

PATIENT
  Age: 83 Year
  Sex: Female
  Weight: 63 kg

DRUGS (1)
  1. HALCION [Suspect]
     Active Substance: TRIAZOLAM
     Dosage: 1.5 DF, 1X/DAY

REACTIONS (4)
  - Tinnitus [Not Recovered/Not Resolved]
  - Cerebrovascular accident [Unknown]
  - Hypertension [Unknown]
  - Nightmare [Not Recovered/Not Resolved]

NARRATIVE: CASE EVENT DATE: 201507
